FAERS Safety Report 7345489-3 (Version None)
Quarter: 2011Q1

REPORT INFORMATION
  Report Type: 
  Country: None (occurrence: None)
  Receive Date: 20110310
  Receipt Date: 20110301
  Transmission Date: 20110831
  Serious: Yes (Hospitalization, Other)
  Sender: FDA-Public Use
  Company Number: PHHY2011US16771

PATIENT
  Age: 45 Year
  Sex: Female

DRUGS (3)
  1. CELEXA [Concomitant]
     Dosage: 20 MG, QD
  2. CLOZARIL [Concomitant]
     Dosage: 25 MG, TID
  3. FANAPT [Suspect]
     Indication: PSYCHOTIC DISORDER
     Dosage: 6 MG, QD
     Route: 048
     Dates: start: 20101201

REACTIONS (3)
  - RESPIRATORY FAILURE [None]
  - PORPHYRIA ACUTE [None]
  - DYSPNOEA [None]
